FAERS Safety Report 24996466 (Version 1)
Quarter: 2025Q1

REPORT INFORMATION
  Report Type: Spontaneous
  Country: IN (occurrence: IN)
  Receive Date: 20250221
  Receipt Date: 20250221
  Transmission Date: 20250408
  Serious: Yes (Other)
  Sender: BRISTOL-MYERS SQUIBB COMPANY
  Company Number: IN-BRISTOL-MYERS SQUIBB COMPANY-2025-020939

PATIENT
  Age: 51 Year
  Sex: Male

DRUGS (3)
  1. DASATINIB [Suspect]
     Active Substance: DASATINIB
     Indication: Chronic myeloid leukaemia
     Dates: start: 20140907, end: 20141016
  2. DASATINIB [Suspect]
     Active Substance: DASATINIB
     Dates: start: 20141028
  3. DASATINIB [Suspect]
     Active Substance: DASATINIB

REACTIONS (4)
  - Skin hypopigmentation [Unknown]
  - Madarosis [Unknown]
  - Dermatitis [Unknown]
  - Haemorrhoids [Unknown]
